FAERS Safety Report 9530283 (Version 3)
Quarter: 2014Q1

REPORT INFORMATION
  Report Type: Report from Study
  Country: FR (occurrence: FR)
  Receive Date: 20130917
  Receipt Date: 20140213
  Transmission Date: 20141002
  Serious: Yes (Death, Hospitalization)
  Sender: FDA-Public Use
  Company Number: FR-EXELIXIS-XL18413003275

PATIENT
  Age: 81 Year
  Sex: Male
  Weight: 56 kg

DRUGS (7)
  1. XL184 [Suspect]
     Indication: PROSTATE CANCER
     Dosage: 60 MG, QD
     Route: 048
     Dates: start: 20130712
  2. XL184 [Suspect]
     Indication: PROSTATE CANCER
     Dosage: 40 MG, QD
     Route: 048
     Dates: start: 2013, end: 20130826
  3. XL184 [Suspect]
     Indication: PROSTATE CANCER
     Dosage: 5 MG, BID
     Route: 048
     Dates: start: 20130712, end: 20130826
  4. LOXEN [Concomitant]
  5. RISPERDAL [Concomitant]
  6. GOSERELIN [Concomitant]
  7. DOLIPRANE [Concomitant]

REACTIONS (2)
  - Agitation [Not Recovered/Not Resolved]
  - General physical health deterioration [Fatal]
